FAERS Safety Report 20006588 (Version 3)
Quarter: 2021Q4

REPORT INFORMATION
  Report Type: Report from Study
  Country: ES (occurrence: ES)
  Receive Date: 20211028
  Receipt Date: 20211208
  Transmission Date: 20220304
  Serious: Yes (Hospitalization)
  Sender: FDA-Public Use
  Company Number: ES-NOVARTISPH-NVSC2021ES243997

PATIENT
  Age: 50 Year
  Sex: Male

DRUGS (2)
  1. NAPORAFENIB [Suspect]
     Active Substance: NAPORAFENIB
     Indication: Non-small cell lung cancer metastatic
     Dosage: 400 MG, BID
     Route: 048
     Dates: start: 20210917, end: 20211014
  2. TRAMETINIB [Suspect]
     Active Substance: TRAMETINIB
     Indication: Non-small cell lung cancer
     Dosage: 0.5 MG, QD
     Route: 048
     Dates: start: 20210917, end: 20211014

REACTIONS (2)
  - Thrombocytopenia [Not Recovered/Not Resolved]
  - Anaemia [Not Recovered/Not Resolved]

NARRATIVE: CASE EVENT DATE: 20211021
